FAERS Safety Report 8140971-3 (Version None)
Quarter: 2012Q1

REPORT INFORMATION
  Report Type: 
  Country: None (occurrence: None)
  Receive Date: 20120216
  Receipt Date: 20120207
  Transmission Date: 20120608
  Serious: Yes (Hospitalization)
  Sender: FDA-Public Use
  Company Number: US-JNJFOC-20120204938

PATIENT
  Age: 34 Year
  Sex: Male
  Weight: 111.59 kg

DRUGS (7)
  1. INVEGA SUSTENNA [Suspect]
     Indication: SCHIZOAFFECTIVE DISORDER
     Route: 030
  2. INVEGA SUSTENNA [Suspect]
     Route: 030
     Dates: start: 20110801, end: 20111216
  3. HALDOL [Suspect]
     Indication: SCHIZOAFFECTIVE DISORDER
     Dosage: 4 MG/PILL
     Route: 048
     Dates: start: 20111201, end: 20111231
  4. INVEGA SUSTENNA [Suspect]
     Route: 030
     Dates: start: 20120106
  5. LEVOTHYROXINE SODIUM [Concomitant]
     Indication: HYPOTHYROIDISM
     Route: 048
  6. VALIUM [Suspect]
     Indication: ANXIETY
     Dosage: 2 MG/PILL
     Route: 048
  7. CLOZARIL [Concomitant]
     Indication: SCHIZOAFFECTIVE DISORDER
     Dosage: 50 MG/PILL
     Route: 048
     Dates: start: 20120119

REACTIONS (6)
  - PARANOIA [None]
  - LETHARGY [None]
  - DRUG SCREEN POSITIVE [None]
  - AGGRESSION [None]
  - HALLUCINATION [None]
  - INAPPROPRIATE SCHEDULE OF DRUG ADMINISTRATION [None]
